FAERS Safety Report 7260724-8 (Version None)
Quarter: 2011Q1

REPORT INFORMATION
  Report Type: 
  Country: None (occurrence: None)
  Receive Date: 20110130
  Receipt Date: 20101111
  Transmission Date: 20110831
  Serious: No
  Sender: FDA-Public Use
  Company Number: US-ABBOTT-10P-163-0684852-00

PATIENT
  Age: 69 Year
  Sex: Male

DRUGS (3)
  1. PENTASA [Concomitant]
     Indication: CROHN'S DISEASE
  2. HUMIRA [Suspect]
     Indication: CROHN'S DISEASE
     Dates: start: 20101001
  3. AVAPRO [Concomitant]
     Indication: BLOOD PRESSURE

REACTIONS (2)
  - INJECTION SITE SWELLING [None]
  - INJECTION SITE PRURITUS [None]
